FAERS Safety Report 8423269-5 (Version None)
Quarter: 2012Q2

REPORT INFORMATION
  Report Type: 
  Country: None (occurrence: None)
  Receive Date: 20120608
  Receipt Date: 20120524
  Transmission Date: 20120825
  Serious: No
  Sender: FDA-Public Use
  Company Number: US-ASTRAZENECA-2012SE21826

PATIENT
  Age: 53 Year
  Sex: Female

DRUGS (6)
  1. NEXIUM [Suspect]
     Indication: IRRITABLE BOWEL SYNDROME
     Route: 048
  2. NEXIUM [Suspect]
     Indication: DYSPEPSIA
     Route: 048
  3. PRILOSEC [Suspect]
     Indication: DYSPEPSIA
     Route: 048
  4. NEXIUM [Suspect]
     Route: 048
  5. NEXIUM [Suspect]
     Route: 048
  6. PRILOSEC [Suspect]
     Indication: IRRITABLE BOWEL SYNDROME
     Route: 048

REACTIONS (6)
  - DRUG DOSE OMISSION [None]
  - ABDOMINAL DISCOMFORT [None]
  - ABDOMINAL PAIN UPPER [None]
  - OFF LABEL USE [None]
  - GASTROOESOPHAGEAL REFLUX DISEASE [None]
  - DRUG INEFFECTIVE [None]
